FAERS Safety Report 13425928 (Version 1)
Quarter: 2017Q2

REPORT INFORMATION
  Report Type: Spontaneous
  Country: US (occurrence: US)
  Receive Date: 20170410
  Receipt Date: 20170410
  Transmission Date: 20170830
  Serious: Yes (Hospitalization)
  Sender: FDA-Public Use
  Company Number: None

PATIENT
  Age: 68 Year
  Sex: Female
  Weight: 63 kg

DRUGS (1)
  1. PACLITAXEL 6 MG/ML [Suspect]
     Active Substance: PACLITAXEL
     Indication: CERVIX CARCINOMA
     Route: 041
     Dates: start: 20170206, end: 20170206

REACTIONS (5)
  - Feeling hot [None]
  - Agitation [None]
  - Generalised erythema [None]
  - Bronchospasm [None]
  - Respiratory rate decreased [None]

NARRATIVE: CASE EVENT DATE: 20170206
